FAERS Safety Report 7811628-0 (Version None)
Quarter: 2011Q4

REPORT INFORMATION
  Report Type: 
  Country: None (occurrence: None)
  Receive Date: 20111013
  Receipt Date: 20111004
  Transmission Date: 20120403
  Serious: Yes (Other)
  Sender: FDA-Public Use
  Company Number: US-US-EMD SERONO, INC.-237891K09USA

PATIENT
  Sex: Female
  Weight: 52 kg

DRUGS (7)
  1. REBIF [Suspect]
     Indication: MULTIPLE SCLEROSIS
     Route: 058
     Dates: start: 20080101
  2. CARBAMAZEPINE [Concomitant]
     Indication: MUSCLE SPASMS
  3. NAPROXEN [Concomitant]
     Indication: ARTHRALGIA
  4. VICODIN [Concomitant]
     Indication: PAIN
  5. STOOL SOFTENER [Concomitant]
     Indication: CONSTIPATION
  6. ZANTAC [Concomitant]
     Indication: GASTROOESOPHAGEAL REFLUX DISEASE
  7. VICODIN [Concomitant]
     Indication: MUSCLE SPASTICITY

REACTIONS (1)
  - UMBILICAL HERNIA [None]
